FAERS Safety Report 4458564-8 (Version None)
Quarter: 2004Q3

REPORT INFORMATION
  Report Type: 
  Country: None (occurrence: None)
  Receive Date: 20040917
  Receipt Date: 20040121
  Transmission Date: 20050211
  Serious: Yes (Other)
  Sender: FDA-Public Use
  Company Number: US-JNJFOC-20031003124

PATIENT
  Age: 42 Year
  Sex: Female
  Weight: 58.514 kg

DRUGS (5)
  1. TOPAMAX [Suspect]
     Indication: NEUROPATHIC PAIN
     Dosage: 50 MG, IN 1 DAY, ORAL
     Route: 048
     Dates: start: 20030701, end: 20031010
  2. METHADONE HCL [Concomitant]
  3. ZANAFLEX [Concomitant]
  4. CLIMARA (PATCH) ESTRADIOL [Concomitant]
  5. PROCRIT [Concomitant]

REACTIONS (3)
  - DIZZINESS [None]
  - DYSPNOEA [None]
  - HYPERSENSITIVITY [None]
